FAERS Safety Report 18617520 (Version 3)
Quarter: 2021Q1

REPORT INFORMATION
  Report Type: Spontaneous
  Country: ES (occurrence: ES)
  Receive Date: 20201215
  Receipt Date: 20210125
  Transmission Date: 20210419
  Serious: Yes (Other)
  Sender: FDA-Public Use
  Company Number: ES-ACCORD-210815

PATIENT
  Age: 68 Year
  Sex: Male
  Weight: 43 kg

DRUGS (4)
  1. OXALIPLATIN. [Concomitant]
     Active Substance: OXALIPLATIN
     Indication: ADENOCARCINOMA OF COLON
     Dosage: 3 CYCLICAL
     Route: 042
  2. CETUXIMAB. [Concomitant]
     Active Substance: CETUXIMAB
     Indication: ADENOCARCINOMA OF COLON
     Dosage: CYCLICAL
     Route: 042
  3. FLUOROURACIL. [Suspect]
     Active Substance: FLUOROURACIL
     Indication: ADENOCARCINOMA OF COLON
     Dosage: 3 CYCLICAL, RECEIVED 3 CYCLE; 400 MG/M2 BOLUS, FOLLOWED BY 1200 MG/M2 IN 46 H. IV
     Route: 042
  4. FLUOROURACIL. [Suspect]
     Active Substance: FLUOROURACIL
     Indication: ADENOCARCINOMA OF COLON
     Dosage: RECEIVED 3 CYCLE; 400 MG/M2 BOLUS, FOLLOWED BY 1200 MG/M2 IN 46 H. IV

REACTIONS (3)
  - Necrotising oesophagitis [Not Recovered/Not Resolved]
  - Ischaemia [Unknown]
  - Gastrointestinal inflammation [Unknown]
